FAERS Safety Report 5574457-7 (Version None)
Quarter: 2007Q4

REPORT INFORMATION
  Report Type: 
  Country: None (occurrence: None)
  Receive Date: 20071226
  Receipt Date: 20071226
  Transmission Date: 20080405
  Serious: No
  Sender: FDA-Public Use
  Company Number: None

PATIENT
  Age: 44 Year
  Sex: Female
  Weight: 61.2356 kg

DRUGS (2)
  1. AMBIEN [Suspect]
     Indication: MIDDLE INSOMNIA
     Dosage: 10MG  AS NEEDED
     Dates: start: 20070917, end: 20070919
  2. AMBIEN [Suspect]
     Indication: MIDDLE INSOMNIA
     Dosage: 10MG  AS NEEDED
     Dates: start: 20071222, end: 20071222

REACTIONS (3)
  - ABNORMAL SLEEP-RELATED EVENT [None]
  - AMNESIA [None]
  - SOMNAMBULISM [None]
